FAERS Safety Report 15273531 (Version 1)
Quarter: 2018Q3

REPORT INFORMATION
  Report Type: Spontaneous
  Country: US (occurrence: US)
  Receive Date: 20180813
  Receipt Date: 20180813
  Transmission Date: 20181010
  Serious: No
  Sender: FDA-Public Use
  Company Number: US-GALDERMA-US18008097

PATIENT
  Sex: Male

DRUGS (3)
  1. DIFFERIN GEL [Suspect]
     Active Substance: ADAPALENE
     Route: 061
  2. AQUAPHOR [Concomitant]
     Active Substance: PETROLATUM
  3. DIFFERIN GEL [Suspect]
     Active Substance: ADAPALENE
     Indication: ROSACEA
     Route: 061

REACTIONS (5)
  - Product use in unapproved indication [Unknown]
  - Dry skin [Unknown]
  - Skin burning sensation [Unknown]
  - Underdose [Unknown]
  - Inappropriate schedule of drug administration [Unknown]
